FAERS Safety Report 7589956-6 (Version None)
Quarter: 2011Q3

REPORT INFORMATION
  Report Type: 
  Country: None (occurrence: None)
  Receive Date: 20110705
  Receipt Date: 20110614
  Transmission Date: 20111222
  Serious: Yes (Hospitalization)
  Sender: FDA-Public Use
  Company Number: A0806413A

PATIENT
  Age: 42 Year
  Sex: Female

DRUGS (8)
  1. ASPIRIN [Concomitant]
  2. AVANDIA [Suspect]
     Route: 048
  3. POTASSIUM CHLORIDE [Concomitant]
  4. MORPHINE [Concomitant]
  5. PRAVACHOL [Concomitant]
  6. PHENERGAN HCL [Concomitant]
  7. NITROGLYCERIN [Concomitant]
  8. TYLENOL-500 [Concomitant]

REACTIONS (3)
  - CEREBROVASCULAR ACCIDENT [None]
  - CARDIAC FAILURE CONGESTIVE [None]
  - ATRIOVENTRICULAR BLOCK [None]
